FAERS Safety Report 6997920-0 (Version None)
Quarter: 2010Q3

REPORT INFORMATION
  Report Type: 
  Country: None (occurrence: None)
  Receive Date: 20100920
  Receipt Date: 20100908
  Transmission Date: 20110219
  Serious: Yes (Other)
  Sender: FDA-Public Use
  Company Number: DE-BAYER-201038800GPV

PATIENT
  Sex: Female
  Weight: 62 kg

DRUGS (2)
  1. QLAIRA [Suspect]
     Indication: CONTRACEPTION
     Route: 048
     Dates: start: 20090626, end: 20100825
  2. L-THYROXIN 75 [Concomitant]

REACTIONS (2)
  - ABORTION [None]
  - PREGNANCY ON ORAL CONTRACEPTIVE [None]
